FAERS Safety Report 23640986 (Version 1)
Quarter: 2024Q1

REPORT INFORMATION
  Report Type: Report from Study
  Country: US (occurrence: US)
  Receive Date: 20240318
  Receipt Date: 20240318
  Transmission Date: 20240410
  Serious: Yes (Hospitalization, Other)
  Sender: FDA-Public Use
  Company Number: US-Merck Healthcare KGaA-2024008044

PATIENT
  Sex: Female

DRUGS (1)
  1. MAVENCLAD [Suspect]
     Active Substance: CLADRIBINE
     Indication: Multiple sclerosis
     Dosage: YEAR ONE THERAPY
     Route: 048
     Dates: start: 20230210

REACTIONS (5)
  - Escherichia sepsis [Unknown]
  - Urosepsis [Unknown]
  - Influenza [Unknown]
  - Lymphopenia [Unknown]
  - Multiple sclerosis relapse [Unknown]
